FAERS Safety Report 20974737 (Version 1)
Quarter: 2022Q2

REPORT INFORMATION
  Report Type: Spontaneous
  Country: US (occurrence: None)
  Receive Date: 20220617
  Receipt Date: 20220617
  Transmission Date: 20220721
  Serious: Yes (Hospitalization, Disabling)
  Sender: FDA-Public Use
  Company Number: None

PATIENT
  Age: 42 Year
  Sex: Female
  Weight: 47.25 kg

DRUGS (2)
  1. HALDOL DECANOATE [Suspect]
     Active Substance: HALOPERIDOL DECANOATE
     Indication: Bipolar I disorder
     Dosage: OTHER QUANTITY : 3 INJECTION(S);?OTHER FREQUENCY : APPROX 1X PER WEEK;?
     Route: 030
     Dates: start: 20220508, end: 20220525
  2. HALDOL DECANOATE [Suspect]
     Active Substance: HALOPERIDOL DECANOATE
     Indication: Mania

REACTIONS (5)
  - Tardive dyskinesia [None]
  - Dystonia [None]
  - Balance disorder [None]
  - Visual impairment [None]
  - Walking aid user [None]

NARRATIVE: CASE EVENT DATE: 20220526
